FAERS Safety Report 5598637-X (Version None)
Quarter: 2007Q4

REPORT INFORMATION
  Report Type: 
  Country: None (occurrence: None)
  Receive Date: 20071226
  Receipt Date: 20071017
  Transmission Date: 20080405
  Serious: No
  Sender: FDA-Public Use
  Company Number: 2007PV033591

PATIENT
  Age: 56 Year
  Sex: Male
  Weight: 127.0072 kg

DRUGS (4)
  1. SYMLIN [Suspect]
     Indication: TYPE 2 DIABETES MELLITUS
     Dosage: 120 MCG;BID;SC, 60 MCG;BID;SC
     Route: 058
     Dates: start: 20071011, end: 20071015
  2. SYMLIN [Suspect]
     Indication: TYPE 2 DIABETES MELLITUS
     Dosage: 120 MCG;BID;SC, 60 MCG;BID;SC
     Route: 058
     Dates: start: 20071016
  3. GLYBURIDE [Concomitant]
  4. AVANDAMET [Concomitant]

REACTIONS (1)
  - BLOOD GLUCOSE INCREASED [None]
